FAERS Safety Report 6445369-1 (Version None)
Quarter: 2009Q4

REPORT INFORMATION
  Report Type: 
  Country: None (occurrence: None)
  Receive Date: 20091118
  Receipt Date: 20091106
  Transmission Date: 20100525
  Serious: Yes (Other)
  Sender: FDA-Public Use
  Company Number: US-B.I. PHARMACEUTICALS,INC./RIDGEFIELD-2009-DE-06933GD

PATIENT
  Age: 74 Year
  Sex: Male
  Weight: 82 kg

DRUGS (7)
  1. CLONIDINE [Suspect]
     Indication: HYPERTENSION
     Dosage: 0.2 MG
  2. HYDROCHLOROTHIAZIDE [Suspect]
     Indication: HYPERTENSION
     Dosage: 25 MG
  3. ATENOLOL [Suspect]
     Indication: HYPERTENSION
     Dosage: 50 MG
  4. LISINOPRIL [Suspect]
     Indication: HYPERTENSION
     Dosage: 40 MG
  5. AMLODIPINE [Suspect]
     Indication: HYPERTENSION
     Dosage: 5 MG
  6. TERAZOSIN HCL [Concomitant]
     Indication: BENIGN PROSTATIC HYPERPLASIA
     Dosage: 5 MG
  7. SIMVASTATIN [Concomitant]
     Dosage: 40 MG

REACTIONS (3)
  - ACCELERATED HYPERTENSION [None]
  - DRUG INEFFECTIVE [None]
  - HYPERTENSION [None]
